FAERS Safety Report 5783127-1 (Version None)
Quarter: 2008Q2

REPORT INFORMATION
  Report Type: 
  Country: None (occurrence: None)
  Receive Date: 20080624
  Receipt Date: 20080620
  Transmission Date: 20081010
  Serious: Yes (Other)
  Sender: FDA-Public Use
  Company Number: GB-ROCHE-568790

PATIENT
  Sex: Male
  Weight: 81.8 kg

DRUGS (3)
  1. COPEGUS [Suspect]
     Indication: DRUG USE FOR UNKNOWN INDICATION
     Route: 048
     Dates: start: 20080204
  2. PEGASYS [Suspect]
     Route: 058
     Dates: start: 20080204, end: 20080602
  3. PEGASYS [Suspect]
     Route: 058
     Dates: start: 20080609

REACTIONS (1)
  - HERPES ZOSTER [None]
